FAERS Safety Report 8246418-0 (Version None)
Quarter: 2012Q1

REPORT INFORMATION
  Report Type: 
  Country: None (occurrence: None)
  Receive Date: 20120329
  Receipt Date: 20120329
  Transmission Date: 20120608
  Serious: Yes (Hospitalization)
  Sender: FDA-Public Use
  Company Number: None

PATIENT
  Age: 63 Year
  Sex: Male
  Weight: 110.9 kg

DRUGS (1)
  1. SULFAMETHOXAZOLE AND TRIMETHOPRIM [Suspect]
     Indication: URINARY TRACT INFECTION
     Dosage: 1 TAB BID PO
     Route: 048
     Dates: start: 20111221, end: 20111221

REACTIONS (9)
  - ABDOMINAL PAIN [None]
  - PYREXIA [None]
  - PRURITUS [None]
  - HEADACHE [None]
  - NAUSEA [None]
  - DIZZINESS [None]
  - URTICARIA [None]
  - CHILLS [None]
  - VOMITING [None]
